FAERS Safety Report 17185389 (Version 1)
Quarter: 2019Q4

REPORT INFORMATION
  Report Type: Spontaneous
  Country: US (occurrence: US)
  Receive Date: 20191220
  Receipt Date: 20191220
  Transmission Date: 20200122
  Serious: No
  Sender: FDA-Public Use
  Company Number: US-THERAPEUTICSMD-2019TMD04473

PATIENT
  Age: 69 Year
  Sex: Female
  Weight: 74.83 kg

DRUGS (7)
  1. VISION HEALTH [Concomitant]
  2. IMVEXXY [Suspect]
     Active Substance: ESTRADIOL
     Indication: VULVOVAGINAL DRYNESS
     Dosage: 10 ?G, 2X/WEEK, BEFORE BED
     Route: 067
     Dates: start: 20191015, end: 2019
  3. IMVEXXY [Suspect]
     Active Substance: ESTRADIOL
     Indication: HAEMATURIA
  4. VITAMIN D [Concomitant]
     Active Substance: VITAMIN D NOS
  5. UNSPECIFIED ANTI-INFLAMMATORY EYE DROP [Suspect]
     Active Substance: UNSPECIFIED INGREDIENT
     Indication: EYE INFLAMMATION
     Dosage: UNK, 4X/DAY
     Route: 047
  6. DOXYCYCLINE. [Concomitant]
     Active Substance: DOXYCYCLINE
  7. VENLAFAXINE [Concomitant]
     Active Substance: VENLAFAXINE HYDROCHLORIDE
     Dosage: 6.25 MG

REACTIONS (5)
  - Off label use [Recovered/Resolved]
  - Dyspepsia [Recovered/Resolved]
  - Eructation [Recovered/Resolved]
  - Product substitution issue [Recovered/Resolved]
  - Nausea [Recovered/Resolved]

NARRATIVE: CASE EVENT DATE: 2019
